FAERS Safety Report 6518061-2 (Version None)
Quarter: 2009Q4

REPORT INFORMATION
  Report Type: 
  Country: None (occurrence: None)
  Receive Date: 20091223
  Receipt Date: 20091223
  Transmission Date: 20100525
  Serious: No
  Sender: FDA-Public Use
  Company Number: None

PATIENT
  Age: 76 Year
  Sex: Female
  Weight: 63.5036 kg

DRUGS (6)
  1. COLD REMEDY LIQUI-LOZ  ZICAM [Suspect]
     Indication: NASOPHARYNGITIS
     Dosage: ONE DOSE
     Dates: start: 20091130, end: 20091130
  2. MUCINEX [Concomitant]
  3. PRILOSEC [Concomitant]
  4. COMBIVENT [Concomitant]
  5. ASMANEX TWISTHALER [Concomitant]
  6. ALBUTEROL [Concomitant]

REACTIONS (1)
  - AGEUSIA [None]
